FAERS Safety Report 4862624-7 (Version None)
Quarter: 2005Q4

REPORT INFORMATION
  Report Type: 
  Country: None (occurrence: None)
  Receive Date: 20051221
  Receipt Date: 20051209
  Transmission Date: 20060501
  Serious: Yes (Other)
  Sender: FDA-Public Use
  Company Number: CA-BRISTOL-MYERS SQUIBB COMPANY-13219266

PATIENT
  Age: 80 Year
  Sex: Female

DRUGS (6)
  1. TEQUIN [Suspect]
     Route: 048
  2. ADVAIR DISKUS 250/50 [Concomitant]
  3. COMBIVENT [Concomitant]
  4. FEMARA [Concomitant]
  5. LEVOTHYROXINE SODIUM [Concomitant]
     Route: 048
  6. VERELAN [Concomitant]
     Route: 048

REACTIONS (1)
  - HYPERGLYCAEMIA [None]
